FAERS Safety Report 5014560-3 (Version None)
Quarter: 2006Q2

REPORT INFORMATION
  Report Type: 
  Country: None (occurrence: None)
  Receive Date: 20060525
  Receipt Date: 20060518
  Transmission Date: 20061013
  Serious: Yes (Other)
  Sender: FDA-Public Use
  Company Number: 2005156170

PATIENT
  Age: 51 Year
  Sex: Male
  Weight: 136.9863 kg

DRUGS (17)
  1. NEURONTIN [Suspect]
     Indication: DIABETIC NEUROPATHY
     Dosage: 3600 MG (400 MG, 9 IN 1 D)
  2. LYRICA [Suspect]
     Indication: NEUROPATHY
     Dosage: 600 MG (200 MG, 3 IN 1 D), ORAL
     Route: 048
     Dates: start: 20050101
  3. ALBUTEROL [Concomitant]
  4. SEREVENT [Concomitant]
  5. VENTOLIN [Concomitant]
  6. TRICOR [Concomitant]
  7. LASIX [Concomitant]
  8. LOPRESSOR [Concomitant]
  9. LIPITOR [Concomitant]
  10. ACCUPRIL [Concomitant]
  11. TEVETEN [Concomitant]
  12. AMARYL [Concomitant]
  13. ACTOS [Concomitant]
  14. GLUCOPHAGE [Concomitant]
  15. OXYCONTIN [Concomitant]
  16. LORCET-HD [Concomitant]
  17. LANTUS [Concomitant]

REACTIONS (5)
  - DRUG INEFFECTIVE [None]
  - INADEQUATE ANALGESIA [None]
  - MYOCARDIAL INFARCTION [None]
  - SOMNOLENCE [None]
  - THERAPEUTIC RESPONSE UNEXPECTED [None]
